FAERS Safety Report 8232126-9 (Version None)
Quarter: 2012Q1

REPORT INFORMATION
  Report Type: 
  Country: None (occurrence: None)
  Receive Date: 20120323
  Receipt Date: 20120314
  Transmission Date: 20120608
  Serious: Yes (Hospitalization)
  Sender: FDA-Public Use
  Company Number: PT-ROCHE-1049354

PATIENT
  Sex: Male

DRUGS (4)
  1. IRINOTECAN HCL [Suspect]
     Indication: METASTASES TO LUNG
     Dates: start: 20111207, end: 20120215
  2. AVASTIN [Suspect]
     Indication: METASTASES TO LUNG
     Dates: start: 20111207, end: 20120130
  3. LEUCOVORIN CALCIUM [Suspect]
     Indication: METASTASES TO LUNG
     Dates: start: 20111207, end: 20120215
  4. FLUOROURACIL [Suspect]
     Indication: METASTASES TO LUNG
     Dates: start: 20111207, end: 20120215

REACTIONS (3)
  - VENA CAVA THROMBOSIS [None]
  - DUODENAL ULCER [None]
  - SUPERIOR VENA CAVA SYNDROME [None]
